FAERS Safety Report 21316289 (Version 1)
Quarter: 2022Q3

REPORT INFORMATION
  Report Type: Report from Study
  Country: CA (occurrence: CA)
  Receive Date: 20220910
  Receipt Date: 20220910
  Transmission Date: 20221027
  Serious: Yes (Hospitalization)
  Sender: FDA-Public Use
  Company Number: CA-NOVARTISPH-NVSC2022CA038927

PATIENT
  Sex: Male

DRUGS (1)
  1. HYRIMOZ [Suspect]
     Active Substance: ADALIMUMAB-ADAZ
     Indication: Crohn^s disease
     Dosage: 40 MG
     Route: 058
     Dates: start: 20210902

REACTIONS (6)
  - Nephrolithiasis [Unknown]
  - Diarrhoea [Recovering/Resolving]
  - Malaise [Recovering/Resolving]
  - Abdominal distension [Recovering/Resolving]
  - Pain [Recovering/Resolving]
  - Inappropriate schedule of product administration [Unknown]
